FAERS Safety Report 8883905 (Version 2)
Quarter: 2012Q4

REPORT INFORMATION
  Report Type: 
  Country: BR (occurrence: BR)
  Receive Date: 20121102
  Receipt Date: 20121113
  Transmission Date: 20130627
  Serious: Yes (Hospitalization)
  Sender: FDA-Public Use
  Company Number: BR-PFIZER INC-2012272734

PATIENT
  Age: 72 Year
  Sex: Female

DRUGS (5)
  1. LYRICA [Suspect]
     Indication: FIBROMYALGIA
     Dosage: 150 mg, 1x/day
     Route: 048
     Dates: start: 2004
  2. LYRICA [Suspect]
     Dosage: 150 mg, 1x/day
     Dates: start: 20121030
  3. OMEPRAZOL [Concomitant]
     Indication: STOMACH FUNCTION DISORDER
  4. CALCIUM [Concomitant]
     Indication: BONE DISORDER
  5. DEOCIL [Concomitant]
     Indication: PAIN

REACTIONS (3)
  - Intervertebral disc protrusion [Unknown]
  - Pain [Unknown]
  - Pain in extremity [Unknown]
